FAERS Safety Report 19846622 (Version 1)
Quarter: 2021Q3

REPORT INFORMATION
  Report Type: Spontaneous
  Country: DE (occurrence: DE)
  Receive Date: 20210917
  Receipt Date: 20210917
  Transmission Date: 20211014
  Serious: Yes (Hospitalization, Other)
  Sender: FDA-Public Use
  Company Number: DE-TEVA-2021-DE-1951962

PATIENT
  Age: 58 Year
  Sex: Male
  Weight: 107 kg

DRUGS (6)
  1. ROPINIROL?1A PHARMA RETARDTABLETTEN [Concomitant]
     Dosage: 4 MILLIGRAM DAILY;  0?1?0?0
     Route: 048
  2. LEVODOPA?CARBIDOPA [Suspect]
     Active Substance: CARBIDOPA\LEVODOPA
     Dosage: 2 DOSAGE FORMS DAILY; 25|100 MG, 0.5?0.5?0.5?0.5
     Route: 048
  3. LEVODOPA?CARBIDOPA [Suspect]
     Active Substance: CARBIDOPA\LEVODOPA
     Dosage: 4 DOSAGE FORMS DAILY; 25|100 MG, 1?1?1?1
     Route: 048
  4. ROPINIROL?1A PHARMA RETARDTABLETTEN [Concomitant]
     Dosage: 8 MILLIGRAM DAILY; 1?0?0?0
     Route: 048
  5. AMANTADIN [Suspect]
     Active Substance: AMANTADINE
     Dosage: 300 MILLIGRAM DAILY;  1?1?1?0
     Route: 048
  6. CLOPIDOGREL [Concomitant]
     Active Substance: CLOPIDOGREL BISULFATE
     Dosage: 75 MG
     Route: 048

REACTIONS (5)
  - Chest discomfort [Unknown]
  - Hypertension [Unknown]
  - Dyspnoea exertional [Unknown]
  - Apnoea [Unknown]
  - Atrial fibrillation [Unknown]
